FAERS Safety Report 16976371 (Version 1)
Quarter: 2019Q4

REPORT INFORMATION
  Report Type: Spontaneous
  Country: DE (occurrence: DE)
  Receive Date: 20191030
  Receipt Date: 20191030
  Transmission Date: 20200122
  Serious: Yes (Other)
  Sender: FDA-Public Use
  Company Number: DE-B.I. PHARMACEUTICALS,INC./RIDGEFIELD-2018-BI-051666

PATIENT
  Age: 64 Year
  Sex: Female

DRUGS (3)
  1. GILOTRIF [Suspect]
     Active Substance: AFATINIB
     Indication: ADENOCARCINOMA
     Route: 065
     Dates: start: 20170203
  2. GILOTRIF [Suspect]
     Active Substance: AFATINIB
     Route: 065
     Dates: start: 20180303
  3. GILOTRIF [Suspect]
     Active Substance: AFATINIB
     Route: 065
     Dates: start: 20170330

REACTIONS (2)
  - Diarrhoea [Unknown]
  - Metastases to pleura [Unknown]

NARRATIVE: CASE EVENT DATE: 201905
